FAERS Safety Report 5093379-1 (Version None)
Quarter: 2006Q3

REPORT INFORMATION
  Report Type: 
  Country: None (occurrence: None)
  Receive Date: 20060828
  Receipt Date: 20060816
  Transmission Date: 20061208
  Serious: Yes (Life-Threatening, Hospitalization)
  Sender: FDA-Public Use
  Company Number: 2006099996

PATIENT
  Age: 64 Year
  Sex: Male

DRUGS (2)
  1. ATORVASTATIN CALCIUM [Suspect]
     Indication: BLOOD CHOLESTEROL INCREASED
     Dosage: (40 MG), ORAL
     Route: 048
     Dates: start: 20060301, end: 20060501
  2. NIFEDIPINE [Concomitant]

REACTIONS (1)
  - RENAL FAILURE ACUTE [None]
